FAERS Safety Report 6946713-9 (Version None)
Quarter: 2010Q3

REPORT INFORMATION
  Report Type: 
  Country: None (occurrence: None)
  Receive Date: 20100827
  Receipt Date: 20090904
  Transmission Date: 20110219
  Serious: No
  Sender: FDA-Public Use
  Company Number: US-ABBOTT-09P-163-0591321-00

PATIENT
  Sex: Female
  Weight: 56.296 kg

DRUGS (6)
  1. NIASPAN [Suspect]
     Indication: BLOOD CHOLESTEROL INCREASED
     Dates: start: 20090201, end: 20090501
  2. NIASPAN [Suspect]
     Dates: start: 20090501, end: 20090501
  3. NIASPAN [Suspect]
     Dates: start: 20090501
  4. VALTREX [Suspect]
     Indication: PRODUCT USED FOR UNKNOWN INDICATION
  5. ATENOLOL [Concomitant]
     Indication: HYPERTENSION
  6. HYDROCHLOROTHIAZIDE [Concomitant]
     Indication: BLOOD PRESSURE

REACTIONS (3)
  - FEELING ABNORMAL [None]
  - FLUSHING [None]
  - INTENTIONAL DRUG MISUSE [None]
